FAERS Safety Report 15221061 (Version 2)
Quarter: 2018Q3

REPORT INFORMATION
  Report Type: Report from Study
  Country: US (occurrence: US)
  Receive Date: 20180731
  Receipt Date: 20180807
  Transmission Date: 20181010
  Serious: Yes (Hospitalization)
  Sender: FDA-Public Use
  Company Number: US-ROCHE-2159517

PATIENT
  Age: 54 Year
  Sex: Male
  Weight: 98.06 kg

DRUGS (10)
  1. PREDNISONE. [Concomitant]
     Active Substance: PREDNISONE
  2. OXYCONTIN [Concomitant]
     Active Substance: OXYCODONE HYDROCHLORIDE
  3. OXYCODON [Concomitant]
     Active Substance: OXYCODONE
  4. ATEZOLIZUMAB. [Suspect]
     Active Substance: ATEZOLIZUMAB
     Indication: TRANSITIONAL CELL CARCINOMA METASTATIC
     Dosage: MOST RECENT DOSE OF ATEZOLIZUMAB PRIOR TO EVENT ONSET WAS ON 25/JUN/2018
     Route: 042
     Dates: start: 20180122
  5. GUADECITABINE [Suspect]
     Active Substance: GUADECITABINE
     Indication: TRANSITIONAL CELL CARCINOMA METASTATIC
     Dosage: MOST RECENT DOSE OF GUADECITABINE PRIOR TO EVENT ONSET WAS ON 29/JUN/2018.
     Route: 058
     Dates: start: 20180122
  6. ATIVAN [Concomitant]
     Active Substance: LORAZEPAM
  7. CARISOPRODOL. [Concomitant]
     Active Substance: CARISOPRODOL
  8. COUMADIN [Concomitant]
     Active Substance: WARFARIN SODIUM
  9. MIRALAX [Concomitant]
     Active Substance: POLYETHYLENE GLYCOL 3350
  10. LISINOPRIL. [Concomitant]
     Active Substance: LISINOPRIL

REACTIONS (1)
  - Febrile neutropenia [Recovered/Resolved]

NARRATIVE: CASE EVENT DATE: 20180722
